FAERS Safety Report 20102159 (Version 1)
Quarter: 2021Q4

REPORT INFORMATION
  Report Type: Spontaneous
  Country: US (occurrence: None)
  Receive Date: 20211123
  Receipt Date: 20211123
  Transmission Date: 20220303
  Serious: Yes (Hospitalization)
  Sender: FDA-Public Use
  Company Number: None

PATIENT
  Age: 64 Year
  Sex: Male
  Weight: 79 kg

DRUGS (2)
  1. CARBOPLATIN [Suspect]
     Active Substance: CARBOPLATIN
     Dates: end: 20181003
  2. ETOPOSIDE [Suspect]
     Active Substance: ETOPOSIDE
     Dates: end: 20181005

REACTIONS (10)
  - Productive cough [None]
  - Device information output issue [None]
  - Peripheral swelling [None]
  - Skin discolouration [None]
  - Atheroembolism [None]
  - Anaemia [None]
  - Transaminases increased [None]
  - Aspartate aminotransferase increased [None]
  - Alanine aminotransferase increased [None]
  - Blood alkaline phosphatase increased [None]

NARRATIVE: CASE EVENT DATE: 20181022
